FAERS Safety Report 9645560 (Version 4)
Quarter: 2014Q3

REPORT INFORMATION
  Report Type: Spontaneous
  Country: US (occurrence: US)
  Receive Date: 20131025
  Receipt Date: 20140703
  Transmission Date: 20150326
  Serious: Yes (Hospitalization, Disabling, Other)
  Sender: FDA-Public Use
  Company Number: US-009507513-1310USA010666

PATIENT
  Sex: Female
  Weight: 70.3 kg

DRUGS (2)
  1. MINOCYCLINE [Suspect]
     Active Substance: MINOCYCLINE\MINOCYCLINE HYDROCHLORIDE
     Indication: DERMATITIS
     Dosage: UNK
     Route: 048
     Dates: end: 2007
  2. NUVARING [Suspect]
     Active Substance: ETHINYL ESTRADIOL\ETONOGESTREL
     Indication: CONTRACEPTION
     Dosage: UNK
     Route: 067
     Dates: start: 200610, end: 20070403

REACTIONS (17)
  - Cough [Unknown]
  - Muscle contracture [Unknown]
  - Lymphadenopathy [Unknown]
  - Superior sagittal sinus thrombosis [Recovering/Resolving]
  - Protein S decreased [Unknown]
  - Cerebral haemorrhage [Recovering/Resolving]
  - Nasopharyngitis [Unknown]
  - Neck pain [Unknown]
  - Sinus congestion [Unknown]
  - Anticoagulation drug level below therapeutic [Unknown]
  - Headache [Recovered/Resolved]
  - Convulsion [Recovered/Resolved]
  - Paraesthesia [Recovering/Resolving]
  - Rhinorrhoea [Unknown]
  - Dermatitis [Unknown]
  - Kidney infection [Unknown]
  - Papilloma viral infection [Unknown]

NARRATIVE: CASE EVENT DATE: 2006
